FAERS Safety Report 12648380 (Version 1)
Quarter: 2016Q3

REPORT INFORMATION
  Report Type: Other
  Country: None (occurrence: US)
  Receive Date: 20160812
  Receipt Date: 20160812
  Transmission Date: 20161109
  Serious: Yes (Life-Threatening, Hospitalization, Disabling, Other)
  Sender: FDA-Public Use
  Company Number: US-SEPTODONT-201603516

PATIENT
  Age: 25 Year
  Sex: Female

DRUGS (1)
  1. XYLOCAINE 2% WITH EPINEPHRINE 1:100,000 INJECTION [Suspect]
     Active Substance: EPINEPHRINE BITARTRATE\LIDOCAINE HYDROCHLORIDE
     Indication: LOCAL ANAESTHESIA
     Route: 004

REACTIONS (5)
  - Executive dysfunction [Unknown]
  - Asthenia [Recovered/Resolved]
  - Self esteem decreased [Unknown]
  - Ruptured cerebral aneurysm [Recovered/Resolved]
  - Headache [Recovered/Resolved]
